FAERS Safety Report 7844714-X (Version None)
Quarter: 2011Q4

REPORT INFORMATION
  Report Type: 
  Country: None (occurrence: None)
  Receive Date: 20111017
  Receipt Date: 20110930
  Transmission Date: 20120403
  Serious: Yes (Hospitalization)
  Sender: FDA-Public Use
  Company Number: DSA_47822_2011

PATIENT
  Sex: Female

DRUGS (3)
  1. ARTOTEC (ARTOTEC - DICLOFENAC SODIUM/MISOPROLOL) (NOT SPECIFIED) [Suspect]
     Indication: ARTHRALGIA
     Dosage: (AS NEEDED ORAL)
     Route: 048
     Dates: start: 20040101, end: 20110906
  2. ACETAMINOPHEN [Suspect]
     Indication: PAIN
     Dosage: (AS NEEDED ORAL)
     Route: 048
     Dates: start: 20040101, end: 20110907
  3. RENITEC /00574902/ (RENITEC-ENALAPRIL MALEATE) (NOT SPECIFIED) [Suspect]
     Indication: HYPERTENSION
     Dosage: (20 MG, DAILY ORAL)
     Route: 048
     Dates: start: 20040101, end: 20110909

REACTIONS (27)
  - INFLAMMATION [None]
  - MOUTH HAEMORRHAGE [None]
  - PETECHIAE [None]
  - CHEST X-RAY ABNORMAL [None]
  - TONSILLAR DISORDER [None]
  - CONJUNCTIVAL HAEMORRHAGE [None]
  - PURPURA [None]
  - TACHYCARDIA [None]
  - HAEMATOMA [None]
  - HAEMATURIA [None]
  - PERIORBITAL HAEMATOMA [None]
  - TOXICITY TO VARIOUS AGENTS [None]
  - ECCHYMOSIS [None]
  - EPISTAXIS [None]
  - BONE MARROW FAILURE [None]
  - RENAL FAILURE [None]
  - ESCHERICHIA TEST POSITIVE [None]
  - CHRONIC LYMPHOCYTIC LEUKAEMIA [None]
  - ACUTE LEUKAEMIA [None]
  - NECROSIS [None]
  - PYREXIA [None]
  - INFECTION [None]
  - C-REACTIVE PROTEIN INCREASED [None]
  - IATROGENIC INJURY [None]
  - TONSILLAR HAEMORRHAGE [None]
  - MYELOFIBROSIS [None]
  - MYELODYSPLASTIC SYNDROME [None]
